FAERS Safety Report 9395030 (Version 6)
Quarter: 2015Q2

REPORT INFORMATION
  Report Type: Report from Study
  Country: US (occurrence: US)
  Receive Date: 20130711
  Receipt Date: 20150526
  Transmission Date: 20150821
  Serious: Yes (Hospitalization)
  Sender: FDA-Public Use
  Company Number: US-SANOFI-AVENTIS-2013SA053280

PATIENT
  Age: 59 Year
  Sex: Male

DRUGS (4)
  1. REBIF [Concomitant]
     Active Substance: INTERFERON BETA-1A
     Dates: start: 20050101, end: 20130123
  2. AUBAGIO [Suspect]
     Active Substance: TERIFLUNOMIDE
     Indication: MULTIPLE SCLEROSIS
     Route: 048
     Dates: start: 20130126
  3. AMPYRA [Concomitant]
     Active Substance: DALFAMPRIDINE
  4. AUBAGIO [Suspect]
     Active Substance: TERIFLUNOMIDE
     Indication: MULTIPLE SCLEROSIS
     Route: 048
     Dates: start: 20130723

REACTIONS (6)
  - Visual impairment [Unknown]
  - Urinary tract infection [Recovered/Resolved]
  - Hypoaesthesia [Unknown]
  - Diarrhoea [Recovered/Resolved]
  - Gait disturbance [Unknown]
  - White blood cell count decreased [Recovered/Resolved]
